FAERS Safety Report 5369891-4 (Version None)
Quarter: 2007Q2

REPORT INFORMATION
  Report Type: 
  Country: None (occurrence: None)
  Receive Date: 20070621
  Receipt Date: 20070607
  Transmission Date: 20071010
  Serious: Yes (Death)
  Sender: FDA-Public Use
  Company Number: 2007P1000185

PATIENT
  Age: 52 Year
  Sex: Male

DRUGS (6)
  1. BUSULFAN (BUSULFAN) [Suspect]
     Indication: STEM CELL TRANSPLANT
     Dosage: 7.7 ML; QID; IV
     Route: 042
     Dates: start: 20061127, end: 20061130
  2. CYCLOPHOSPHAMIDE [Suspect]
     Indication: DRUG USE FOR UNKNOWN INDICATION
  3. TACROLIMUS [Suspect]
     Indication: PROPHYLAXIS AGAINST GRAFT VERSUS HOST DISEASE
  4. PHENYTOIN [Concomitant]
  5. METHOTREXATE [Concomitant]
  6. GRANISETRON  HCL [Concomitant]

REACTIONS (14)
  - ANOREXIA [None]
  - CYTOMEGALOVIRUS ANTIGEN POSITIVE [None]
  - DIARRHOEA [None]
  - DYSURIA [None]
  - ERYTHEMA [None]
  - GRAFT VERSUS HOST DISEASE [None]
  - INTERSTITIAL LUNG DISEASE [None]
  - LIVER DISORDER [None]
  - MALAISE [None]
  - NAUSEA [None]
  - PETECHIAE [None]
  - POLLAKIURIA [None]
  - VARICELLA [None]
  - VOMITING [None]
